FAERS Safety Report 7520448-6 (Version None)
Quarter: 2011Q2

REPORT INFORMATION
  Report Type: 
  Country: None (occurrence: None)
  Receive Date: 20110602
  Receipt Date: 20070209
  Transmission Date: 20111010
  Serious: Yes (Hospitalization)
  Sender: FDA-Public Use
  Company Number: CA-GENENTECH-319659

PATIENT
  Sex: Male
  Weight: 120 kg

DRUGS (1)
  1. XOLAIR [Suspect]
     Indication: ASTHMA
     Dosage: 300 UNK, 1/MONTH
     Dates: start: 20060419

REACTIONS (3)
  - SEPSIS [None]
  - ASTHENIA [None]
  - CELLULITIS [None]
